FAERS Safety Report 23694513 (Version 1)
Quarter: 2024Q2

REPORT INFORMATION
  Report Type: Spontaneous
  Country: AU (occurrence: AU)
  Receive Date: 20240401
  Receipt Date: 20240401
  Transmission Date: 20240716
  Serious: Yes (Other)
  Sender: FDA-Public Use
  Company Number: AU-JAZZ PHARMACEUTICALS-2024-AU-005231

PATIENT
  Sex: Male

DRUGS (1)
  1. DEFITELIO [Suspect]
     Active Substance: DEFIBROTIDE SODIUM
     Indication: Product used for unknown indication

REACTIONS (3)
  - Febrile neutropenia [Unknown]
  - Multiple organ dysfunction syndrome [Unknown]
  - Tachycardia [Unknown]
